FAERS Safety Report 7775538-X (Version None)
Quarter: 2011Q3

REPORT INFORMATION
  Report Type: 
  Country: None (occurrence: None)
  Receive Date: 20110923
  Receipt Date: 20110916
  Transmission Date: 20111222
  Serious: Yes (Hospitalization)
  Sender: FDA-Public Use
  Company Number: NL-GENENTECH-324704

PATIENT
  Sex: Male
  Weight: 81 kg

DRUGS (7)
  1. CISPLATIN [Suspect]
     Indication: B-CELL LYMPHOMA
     Dosage: 200 MG, UNK
     Route: 042
     Dates: start: 20110222
  2. DEXAMETHASONE [Suspect]
     Indication: B-CELL LYMPHOMA
     Dosage: 40 MG, UNK
     Route: 042
     Dates: start: 20110222
  3. CYTARABINE [Suspect]
     Indication: B-CELL LYMPHOMA
     Dosage: 4000 MG, UNK
     Route: 042
     Dates: start: 20110223
  4. OMEPRAZOLE [Concomitant]
     Indication: PRODUCT USED FOR UNKNOWN INDICATION
     Dosage: 40 MG, UNK
     Route: 048
     Dates: start: 20110208
  5. CYCLOPHOSPHAMIDE [Suspect]
     Indication: B-CELL LYMPHOMA
     Dosage: 4800 MG, UNK
     Route: 042
     Dates: start: 20110624
  6. BUSULFAN [Suspect]
     Indication: B-CELL LYMPHOMA
     Dosage: 320 MG, UNK
     Route: 048
     Dates: start: 20110620
  7. RITUXIMAB [Suspect]
     Indication: B-CELL LYMPHOMA
     Dosage: 750 MG, UNK
     Route: 042
     Dates: start: 20110226

REACTIONS (1)
  - CONVULSION [None]
